FAERS Safety Report 26019847 (Version 1)
Quarter: 2025Q4

REPORT INFORMATION
  Report Type: Other
  Country: CH (occurrence: CH)
  Receive Date: 20251110
  Receipt Date: 20251110
  Transmission Date: 20260118
  Serious: Yes (Death)
  Sender: ALVOGEN
  Company Number: CH-ALVOGEN-2025098974

PATIENT
  Age: 20 Year
  Sex: Male
  Weight: 53 kg

DRUGS (2)
  1. DEXTROAMPHETAMINE SACCHARATE, AMPHETAMINE ASPARTATE, DEXTROAMPHETAMINE [Suspect]
     Active Substance: AMPHETAMINE ASPARTATE\AMPHETAMINE SULFATE\DEXTROAMPHETAMINE SACCHARATE\DEXTROAMPHETAMINE SULFATE
     Indication: Product used for unknown indication
  2. CLONAZEPAM [Suspect]
     Active Substance: CLONAZEPAM
     Indication: Product used for unknown indication

REACTIONS (8)
  - Toxicity to various agents [Fatal]
  - Loss of consciousness [Fatal]
  - Cardiac arrest [Fatal]
  - Brain oedema [Fatal]
  - Pulmonary oedema [Fatal]
  - Gastric haemorrhage [Fatal]
  - Respiratory depression [Fatal]
  - Aspiration [Fatal]
